FAERS Safety Report 8986480 (Version 1)
Quarter: 2012Q4

REPORT INFORMATION
  Report Type: 
  Country: CN (occurrence: CN)
  Receive Date: 20121227
  Receipt Date: 20121227
  Transmission Date: 20130627
  Serious: Yes (Other)
  Sender: FDA-Public Use
  Company Number: CN-BAYER-2012-133038

PATIENT
  Age: 56 Year
  Sex: Male
  Weight: 60 kg

DRUGS (1)
  1. NEXAVAR [Suspect]
     Indication: RENAL CELL CARCINOMA
     Dosage: 2 DF, BID
     Route: 048
     Dates: start: 20091105, end: 20100105

REACTIONS (4)
  - Dry skin [Recovering/Resolving]
  - Face oedema [Recovering/Resolving]
  - Hypertension [Recovering/Resolving]
  - Alanine aminotransferase increased [Recovering/Resolving]
